FAERS Safety Report 9719135 (Version 1)
Quarter: 2013Q4

REPORT INFORMATION
  Report Type: Spontaneous
  Country: NL (occurrence: NL)
  Receive Date: 20131127
  Receipt Date: 20131127
  Transmission Date: 20140711
  Serious: Yes (Other)
  Sender: FDA-Public Use
  Company Number: PHHY2013NL132778

PATIENT
  Sex: Female

DRUGS (5)
  1. OMEPRAZOLE [Suspect]
     Indication: PROPHYLAXIS AGAINST GASTROINTESTINAL ULCER
     Dosage: 20 MG, QD
  2. MELOXICAM [Suspect]
     Dosage: 15 MG, QD
  3. TERIPARATIDE [Suspect]
     Indication: OSTEOPOROSIS PROPHYLAXIS
     Dosage: 600 UG, UNK
  4. BUDESONIDE [Concomitant]
  5. CALCIUM CARBONATE W/COLECALCIFEROL [Concomitant]

REACTIONS (2)
  - Deafness unilateral [Unknown]
  - Tinnitus [Unknown]
